FAERS Safety Report 23631515 (Version 4)
Quarter: 2025Q4

REPORT INFORMATION
  Report Type: Spontaneous
  Country: CA (occurrence: CA)
  Receive Date: 20240314
  Receipt Date: 20251125
  Transmission Date: 20260117
  Serious: Yes (Congenital Anomaly, Other)
  Sender: PFIZER
  Company Number: CA-PFIZER INC-202400024847

PATIENT
  Age: 49 Year
  Sex: Female

DRUGS (9)
  1. RUXIENCE [Suspect]
     Active Substance: RITUXIMAB-PVVR
     Indication: Rheumatoid arthritis
     Dosage: 1000 MG DAY 1 AND DAY 15, EVERY 6 MONTHS
     Route: 042
     Dates: start: 20230621
  2. RUXIENCE [Suspect]
     Active Substance: RITUXIMAB-PVVR
     Dosage: 1000 MG DAY 1 AND DAY 15, EVERY 6 MONTHS
     Route: 042
     Dates: start: 20230705
  3. RUXIENCE [Suspect]
     Active Substance: RITUXIMAB-PVVR
     Dosage: 1000 MG DAY 1 AND DAY 15, EVERY 6 MONTHS
     Route: 042
     Dates: start: 20240221
  4. RUXIENCE [Suspect]
     Active Substance: RITUXIMAB-PVVR
     Dosage: 1000 MG DAY 1 AND DAY 15, EVERY 6 MONTHS
     Route: 042
     Dates: start: 20240307, end: 20240307
  5. RUXIENCE [Suspect]
     Active Substance: RITUXIMAB-PVVR
     Dosage: 1000 MG, DAY 1 OF RETREATMENT (DAY 1 AND DAY 15, EVERY 6 MONTHS)
     Route: 042
     Dates: start: 20240911
  6. RUXIENCE [Suspect]
     Active Substance: RITUXIMAB-PVVR
     Dosage: 1000 MG, DAY 1 AND DAY 15
     Route: 042
     Dates: start: 20250430
  7. RUXIENCE [Suspect]
     Active Substance: RITUXIMAB-PVVR
     Dosage: 1000 MG, DAY 1 AND DAY 15
     Route: 042
     Dates: start: 20250514
  8. RUXIENCE [Suspect]
     Active Substance: RITUXIMAB-PVVR
     Dosage: 1000 MG, DAY 1 AND DAY 15
     Route: 042
     Dates: start: 20251029
  9. RUXIENCE [Suspect]
     Active Substance: RITUXIMAB-PVVR
     Dosage: 1000 MG AFTER 3 WEEKS (1000 MG DAY1 AND DAY15)
     Route: 042
     Dates: start: 20251119

REACTIONS (8)
  - Rib fracture [Recovering/Resolving]
  - Sneezing [Recovering/Resolving]
  - Fall [Recovering/Resolving]
  - Arthralgia [Recovering/Resolving]
  - C-reactive protein increased [Recovering/Resolving]
  - Off label use [Unknown]
  - Intentional product use issue [Unknown]
  - Inappropriate schedule of product administration [Unknown]

NARRATIVE: CASE EVENT DATE: 20240101
